FAERS Safety Report 10077808 (Version 2)
Quarter: 2014Q2

REPORT INFORMATION
  Report Type: Spontaneous
  Country: JP (occurrence: JP)
  Receive Date: 20140414
  Receipt Date: 20140515
  Transmission Date: 20141212
  Serious: Yes (Other)
  Sender: FDA-Public Use
  Company Number: PHHY2014JP044914

PATIENT
  Age: 59 Year
  Sex: Male

DRUGS (7)
  1. CLOZARIL [Suspect]
     Indication: SCHIZOPHRENIA
     Dosage: UNK
     Route: 048
     Dates: start: 20140319
  2. CLOZARIL [Suspect]
     Dosage: 75 MG, UNK
     Route: 048
     Dates: start: 20140328, end: 20140407
  3. CLOZARIL [Suspect]
     Dosage: 12.5 MG, UNK
     Route: 048
     Dates: start: 20140421
  4. LITHIUM CARBONATE [Suspect]
     Indication: SCHIZOPHRENIA
     Dosage: 600 MG, UNK
     Route: 048
     Dates: start: 20140314, end: 20140417
  5. FLUNITRAZEPAM [Suspect]
     Indication: SCHIZOPHRENIA
     Dosage: 2 MG, UNK
     Dates: start: 20140314
  6. HALCION [Suspect]
     Indication: SCHIZOPHRENIA
     Dosage: 0.25 MG, UNK
     Route: 048
     Dates: start: 20140314, end: 20140403
  7. CRAVIT [Suspect]
     Dosage: 500 MG, UNK
     Route: 048
     Dates: end: 20140412

REACTIONS (3)
  - Urinary tract infection [Recovering/Resolving]
  - Urine abnormality [Unknown]
  - Pyrexia [Recovered/Resolved]
